FAERS Safety Report 5482537-X (Version None)
Quarter: 2007Q4

REPORT INFORMATION
  Report Type: 
  Country: None (occurrence: None)
  Receive Date: 20071011
  Receipt Date: 20070627
  Transmission Date: 20080405
  Serious: No
  Sender: FDA-Public Use
  Company Number: A0660338A

PATIENT
  Age: 68 Year
  Sex: Female

DRUGS (4)
  1. TYKERB [Suspect]
     Indication: BREAST CANCER
     Dosage: 5TAB PER DAY
     Route: 048
     Dates: start: 20070301
  2. XELODA [Concomitant]
  3. ZYRTEC [Concomitant]
  4. PROTONIX [Concomitant]

REACTIONS (7)
  - CONDITION AGGRAVATED [None]
  - EYE DISORDER [None]
  - LOCALISED INFECTION [None]
  - NAIL BED BLEEDING [None]
  - OEDEMA PERIPHERAL [None]
  - PAIN IN EXTREMITY [None]
  - SKIN BURNING SENSATION [None]
